FAERS Safety Report 4616143-3 (Version None)
Quarter: 2005Q1

REPORT INFORMATION
  Report Type: 
  Country: None (occurrence: None)
  Receive Date: 20050321
  Receipt Date: 20050317
  Transmission Date: 20050727
  Serious: Yes (Other)
  Sender: FDA-Public Use
  Company Number: 05-0036PO

PATIENT
  Age: 51 Year
  Sex: Female

DRUGS (1)
  1. MEFENAMIC ACID [Suspect]
     Indication: DYSMENORRHOEA
     Dosage: 500 MG, 3 TIMES A DAY, PO
     Route: 048
     Dates: start: 20050118, end: 20050122

REACTIONS (2)
  - MOUTH ULCERATION [None]
  - SWELLING FACE [None]
